FAERS Safety Report 13680221 (Version 2)
Quarter: 2017Q3

REPORT INFORMATION
  Report Type: Report from Study
  Country: US (occurrence: US)
  Receive Date: 20170622
  Receipt Date: 20170824
  Transmission Date: 20171127
  Serious: Yes (Hospitalization, Other)
  Sender: FDA-Public Use
  Company Number: US-ARIAD-2017US007697

PATIENT
  Age: 42 Year
  Sex: Female

DRUGS (2)
  1. ICLUSIG [Suspect]
     Active Substance: PONATINIB
     Indication: ACUTE LYMPHOCYTIC LEUKAEMIA
     Dosage: 30 MG, QD
     Route: 048
     Dates: start: 20170118
  2. ICLUSIG [Suspect]
     Active Substance: PONATINIB
     Dosage: 15 MG, QD
     Route: 048

REACTIONS (29)
  - Pallor [Unknown]
  - Upper-airway cough syndrome [Unknown]
  - Stem cell transplant [Unknown]
  - Heart rate increased [Unknown]
  - Alopecia [Unknown]
  - Dry skin [Unknown]
  - Myalgia [Unknown]
  - Skin discolouration [Not Recovered/Not Resolved]
  - Arthralgia [Unknown]
  - Pain in extremity [Unknown]
  - Skin wrinkling [Not Recovered/Not Resolved]
  - Treatment noncompliance [Unknown]
  - Bone marrow transplant [Unknown]
  - Blood pressure increased [Unknown]
  - Chemotherapy [Unknown]
  - Electrocardiogram QT prolonged [Unknown]
  - Malaise [Unknown]
  - Upper gastrointestinal haemorrhage [Unknown]
  - Herpes zoster [Unknown]
  - Rash pruritic [Not Recovered/Not Resolved]
  - Bone pain [Unknown]
  - Oedema peripheral [Unknown]
  - Gastrointestinal sounds abnormal [Unknown]
  - Muscle oedema [Unknown]
  - Musculoskeletal chest pain [Unknown]
  - Skin exfoliation [Unknown]
  - Abdominal pain [Unknown]
  - Rash [Unknown]
  - Decreased activity [Unknown]

NARRATIVE: CASE EVENT DATE: 20170317
